FAERS Safety Report 4736694-0 (Version None)
Quarter: 2005Q3

REPORT INFORMATION
  Report Type: 
  Country: None (occurrence: None)
  Receive Date: 20050808
  Receipt Date: 20050727
  Transmission Date: 20060218
  Serious: Yes (Other)
  Sender: FDA-Public Use
  Company Number: US-BRISTOL-MYERS SQUIBB COMPANY-13053962

PATIENT
  Age: 61 Year
  Sex: Male

DRUGS (4)
  1. ARIPIPRAZOLE [Suspect]
     Indication: MAJOR DEPRESSION
     Route: 048
     Dates: start: 20050714, end: 20050726
  2. ZOLOFT [Suspect]
     Indication: MAJOR DEPRESSION
     Route: 048
     Dates: start: 20050404, end: 20050726
  3. LIPITOR [Concomitant]
     Dates: start: 19960101
  4. MULTI-VITAMIN [Concomitant]
     Dates: start: 20050101

REACTIONS (2)
  - OPTIC NEURITIS [None]
  - PAPILLOEDEMA [None]
